FAERS Safety Report 7959932-X (Version None)
Quarter: 2011Q4

REPORT INFORMATION
  Report Type: 
  Country: None (occurrence: None)
  Receive Date: 20111206
  Receipt Date: 20111130
  Transmission Date: 20120403
  Serious: Yes (Hospitalization, Disabling, Other)
  Sender: FDA-Public Use
  Company Number: US-MERCK-1107USA03584

PATIENT
  Age: 60 Year
  Sex: Female

DRUGS (8)
  1. FOSAMAX [Suspect]
     Route: 048
     Dates: start: 20010101, end: 20080501
  2. FOSAMAX [Suspect]
     Indication: PROPHYLAXIS
     Route: 048
     Dates: start: 19950101
  3. ACTONEL [Suspect]
     Route: 065
     Dates: start: 20080517, end: 20080901
  4. PLAQUENIL [Concomitant]
     Indication: RHEUMATOID ARTHRITIS
     Route: 065
     Dates: start: 19950101
  5. FOSAMAX [Suspect]
     Indication: OSTEOPOROSIS
     Route: 048
     Dates: start: 19950101
  6. FOSAMAX [Suspect]
     Route: 048
     Dates: start: 20010101, end: 20080501
  7. FOSAMAX PLUS D [Suspect]
     Route: 048
     Dates: start: 20070430, end: 20080101
  8. FOSAMAX [Suspect]
     Route: 048
     Dates: start: 20080903

REACTIONS (36)
  - FRACTURE DELAYED UNION [None]
  - ANAEMIA POSTOPERATIVE [None]
  - GASTRITIS [None]
  - AUTOIMMUNE THYROIDITIS [None]
  - INTERVERTEBRAL DISC PROTRUSION [None]
  - MYELOPATHY [None]
  - FEMUR FRACTURE [None]
  - INTERVERTEBRAL DISC DISORDER [None]
  - ARTHRALGIA [None]
  - SJOGREN'S SYNDROME [None]
  - PAIN IN EXTREMITY [None]
  - SOFT TISSUE HAEMORRHAGE [None]
  - COMMINUTED FRACTURE [None]
  - DRUG HYPERSENSITIVITY [None]
  - OSTEOARTHRITIS [None]
  - MELANOSIS COLI [None]
  - WEIGHT INCREASED [None]
  - SPINAL CORD COMPRESSION [None]
  - MUSCULAR WEAKNESS [None]
  - GOITRE [None]
  - DIABETES MELLITUS [None]
  - CALCIFICATION OF MUSCLE [None]
  - PARAESTHESIA [None]
  - TEMPOROMANDIBULAR JOINT SYNDROME [None]
  - TACHYCARDIA [None]
  - STRESS FRACTURE [None]
  - SPONDYLOLISTHESIS [None]
  - GENERAL PHYSICAL HEALTH DETERIORATION [None]
  - INTERVERTEBRAL DISC DEGENERATION [None]
  - INSOMNIA [None]
  - THYROIDITIS SUBACUTE [None]
  - FATIGUE [None]
  - PALPITATIONS [None]
  - HYPOAESTHESIA [None]
  - OEDEMA PERIPHERAL [None]
  - CERVICAL MYELOPATHY [None]
